FAERS Safety Report 6657278-3 (Version None)
Quarter: 2010Q1

REPORT INFORMATION
  Report Type: 
  Country: None (occurrence: None)
  Receive Date: 20100330
  Receipt Date: 20100323
  Transmission Date: 20100710
  Serious: Yes (Hospitalization)
  Sender: FDA-Public Use
  Company Number: JP-ASTRAZENECA-2009SE18607

PATIENT
  Age: 27137 Day
  Sex: Male
  Weight: 61 kg

DRUGS (6)
  1. CANDESARTAN CILEXETIL [Suspect]
     Indication: HYPERTENSION
     Route: 048
     Dates: start: 20070804, end: 20090524
  2. ASPIRIN [Suspect]
     Route: 048
     Dates: start: 20090327, end: 20090524
  3. PANALDINE [Suspect]
     Route: 048
     Dates: start: 20090327, end: 20090524
  4. BASEN [Concomitant]
     Indication: DIABETES MELLITUS
     Route: 048
     Dates: end: 20070804
  5. BASEN [Concomitant]
     Route: 048
     Dates: start: 20070805, end: 20071218
  6. VOGLIBOSE [Concomitant]
     Indication: DIABETES MELLITUS
     Route: 048
     Dates: start: 20071219

REACTIONS (7)
  - ANAEMIA [None]
  - ANGINA PECTORIS [None]
  - HAEMATOCRIT DECREASED [None]
  - HAEMOGLOBIN DECREASED [None]
  - LACUNAR INFARCTION [None]
  - RED BLOOD CELL COUNT DECREASED [None]
  - SMALL INTESTINAL HAEMORRHAGE [None]
